FAERS Safety Report 20887183 (Version 1)
Quarter: 2022Q2

REPORT INFORMATION
  Report Type: Report from Study
  Country: US (occurrence: US)
  Receive Date: 20220528
  Receipt Date: 20220528
  Transmission Date: 20220720
  Serious: Yes (Hospitalization, Other)
  Sender: FDA-Public Use
  Company Number: US-BRISTOL-MYERS SQUIBB COMPANY-2022-022278

PATIENT
  Age: 74 Year
  Sex: Male
  Weight: 80.29 kg

DRUGS (1)
  1. POMALYST [Suspect]
     Active Substance: POMALIDOMIDE
     Indication: Amyloidosis
     Dosage: EXPIRY DATE 31-JAN-2025
     Route: 048
     Dates: start: 20220316

REACTIONS (6)
  - Asthenia [Unknown]
  - Tremor [Unknown]
  - Rash [Unknown]
  - Ascites [Unknown]
  - Stenosis [Unknown]
  - Intentional product use issue [Unknown]
